FAERS Safety Report 9109147 (Version 3)
Quarter: 2013Q2

REPORT INFORMATION
  Report Type: Spontaneous
  Country: JP (occurrence: JP)
  Receive Date: 20130222
  Receipt Date: 20130620
  Transmission Date: 20140414
  Serious: Yes (Other)
  Sender: FDA-Public Use
  Company Number: JP-ABBOTT-13P-087-1052041-00

PATIENT
  Age: 40 Year
  Sex: Female
  Weight: 51 kg

DRUGS (13)
  1. HUMIRA [Suspect]
     Indication: CROHN^S DISEASE
     Route: 058
     Dates: start: 20110314, end: 20110314
  2. HUMIRA [Suspect]
     Dates: start: 20110328, end: 20110328
  3. HUMIRA [Suspect]
     Dates: start: 20110411
  4. HUMIRA [Suspect]
     Dates: start: 20110808, end: 20110808
  5. HUMIRA [Suspect]
     Dates: start: 20110822, end: 20110822
  6. HUMIRA [Suspect]
     Dates: start: 20110905, end: 20130126
  7. CLOSTRIDIUM BUTYRICUM [Concomitant]
     Indication: CROHN^S DISEASE
     Route: 048
  8. ALFACALCIDOL [Concomitant]
     Indication: OSTEOPOROSIS
     Route: 048
  9. CALCIUM L-ASPARTATE [Concomitant]
     Indication: CROHN^S DISEASE
     Route: 048
  10. PARENTERAL NUTRITION [Concomitant]
     Indication: CROHN^S DISEASE
     Route: 048
  11. DAIKENCHUTO (HERBAL MEDICATION) [Concomitant]
     Indication: CROHN^S DISEASE
     Route: 048
  12. SALAZOSULFAPYRIDINE [Concomitant]
     Indication: CROHN^S DISEASE
     Route: 048
  13. MESALAZINE [Concomitant]
     Indication: CROHN^S DISEASE
     Route: 048

REACTIONS (3)
  - Pyrexia [Recovered/Resolved]
  - Anaphylactic shock [Recovered/Resolved]
  - Chest pain [Recovered/Resolved]
